FAERS Safety Report 8816725 (Version 1)
Quarter: 2012Q4

REPORT INFORMATION
  Report Type: Spontaneous
  Country: US (occurrence: None)
  Receive Date: 20121001
  Receipt Date: 20121001
  Transmission Date: 20130627
  Serious: Yes (Hospitalization, Other)
  Sender: FDA-Public Use
  Company Number: DSU-2012-07725

PATIENT
  Sex: Male
  Weight: 114.31 kg

DRUGS (8)
  1. WELCHOL [Suspect]
     Indication: HYPERCHOLESTEROLEMIA
     Route: 048
     Dates: start: 2007
  2. AZATHIOPRINE (AZATHIOPRINE) (AZATHIOPRINE) [Concomitant]
  3. TOPROL XL (METOPROLOL SUCCINATE) (METOPROLOL SUCCINATE) [Concomitant]
  4. HYDROCHLOROTHIAZIDE (HYDROCHLOROTHIAZIDE) (HYDROCHLOROTHIAZIDE) [Concomitant]
  5. CLARITHROMYCIN (CLARITHROMYCIN) (CLARITHROMYCIN) [Concomitant]
  6. AMOXCILLIN (AMOXCILLIN TRIHYDRATE) (AMOXICILLIN TRIHYDRATE) [Concomitant]
  7. OMEPRAZOLE (OMEPRAZOLE) (OMEPRAZOLE) [Concomitant]
  8. LIALDA (MESALAZINE) (MESALAZINE) [Concomitant]

REACTIONS (1)
  - Porphyria [None]
